FAERS Safety Report 25211275 (Version 2)
Quarter: 2025Q3

REPORT INFORMATION
  Report Type: Report from Study
  Country: US (occurrence: US)
  Receive Date: 20250417
  Receipt Date: 20250809
  Transmission Date: 20251020
  Serious: Yes (Other)
  Sender: ALEXION PHARMACEUTICALS
  Company Number: US-AstraZeneca-CH-00847892A

PATIENT
  Sex: Male

DRUGS (1)
  1. OSIMERTINIB [Suspect]
     Active Substance: OSIMERTINIB
     Route: 065

REACTIONS (11)
  - Pleural effusion [Unknown]
  - Pulmonary mass [Unknown]
  - Nephrolithiasis [Unknown]
  - Asthenia [Unknown]
  - Nausea [Unknown]
  - Vomiting [Unknown]
  - Decreased appetite [Unknown]
  - Insomnia [Unknown]
  - Depression [Unknown]
  - Dyspnoea [Unknown]
  - Metastasis [Unknown]
